FAERS Safety Report 5717244-9 (Version None)
Quarter: 2008Q2

REPORT INFORMATION
  Report Type: 
  Country: None (occurrence: None)
  Receive Date: 20080423
  Receipt Date: 20080409
  Transmission Date: 20081010
  Serious: Yes (Hospitalization)
  Sender: FDA-Public Use
  Company Number: 8031785

PATIENT
  Age: 25 Year
  Sex: Male
  Weight: 125 kg

DRUGS (1)
  1. KEPPRA [Suspect]
     Dosage: 1000 MG 2/D PO
     Route: 048
     Dates: start: 20080101, end: 20080404

REACTIONS (6)
  - AGGRESSION [None]
  - CRYING [None]
  - ILL-DEFINED DISORDER [None]
  - INCONTINENCE [None]
  - MEDICATION ERROR [None]
  - WRONG DRUG ADMINISTERED [None]
